FAERS Safety Report 11787144 (Version 1)
Quarter: 2015Q4

REPORT INFORMATION
  Report Type: Spontaneous
  Country: SE (occurrence: SE)
  Receive Date: 20151130
  Receipt Date: 20151130
  Transmission Date: 20160305
  Serious: Yes (Other)
  Sender: FDA-Public Use
  Company Number: SE-009507513-1511SWE014658

PATIENT
  Age: 67 Year
  Sex: Male

DRUGS (12)
  1. HUMULIN N [Concomitant]
     Active Substance: INSULIN HUMAN
  2. FURIX [Concomitant]
     Active Substance: FUROSEMIDE
  3. XARELTO [Concomitant]
     Active Substance: RIVAROXABAN
  4. GIONA [Concomitant]
  5. PULMICORT TURBUHALER [Concomitant]
     Active Substance: BUDESONIDE
  6. ACETYLCYSTEINE. [Concomitant]
     Active Substance: ACETYLCYSTEINE
  7. LORATADINE. [Concomitant]
     Active Substance: LORATADINE
  8. RAMIPRIL. [Concomitant]
     Active Substance: RAMIPRIL
  9. VENTOLIN [Concomitant]
     Active Substance: ALBUTEROL SULFATE
  10. JANUVIA [Suspect]
     Active Substance: SITAGLIPTIN PHOSPHATE
     Indication: TYPE 2 DIABETES MELLITUS
     Route: 048
     Dates: start: 20150501, end: 20150525
  11. ALLOPURINOL. [Concomitant]
     Active Substance: ALLOPURINOL
  12. OXIS [Concomitant]
     Active Substance: FORMOTEROL FUMARATE

REACTIONS (1)
  - Toxic skin eruption [Recovered/Resolved]

NARRATIVE: CASE EVENT DATE: 201505
